FAERS Safety Report 17351454 (Version 1)
Quarter: 2020Q1

REPORT INFORMATION
  Report Type: Spontaneous
  Country: CA (occurrence: CA)
  Receive Date: 20200130
  Receipt Date: 20200130
  Transmission Date: 20200409
  Serious: Yes (Disabling)
  Sender: FDA-Public Use
  Company Number: CA-TEVA-2020-CA-1176482

PATIENT
  Age: 2 Year
  Sex: Male
  Weight: 14 kg

DRUGS (18)
  1. CISPLATIN INJECTION [Suspect]
     Active Substance: CISPLATIN
     Indication: NEUROBLASTOMA
     Route: 042
  2. CIPROFLOXACIN. [Concomitant]
     Active Substance: CIPROFLOXACIN
  3. CYCLOPHOSPHAMIDE. [Concomitant]
     Active Substance: CYCLOPHOSPHAMIDE
  4. HEPARIN CALCIUM [Concomitant]
     Active Substance: HEPARIN CALCIUM
  5. MICAFUNGIN (MCFG) [Concomitant]
     Active Substance: MICAFUNGIN
  6. AMLODIPINE [Concomitant]
     Active Substance: AMLODIPINE BESYLATE
  7. G-CSF(TEVAGRASTIM/RATIOGRASTIM) [Concomitant]
  8. PIPERACILLIN/TAZOBACTAM [Concomitant]
     Active Substance: PIPERACILLIN SODIUM\TAZOBACTAM SODIUM
  9. SODIUM CHLORIDE. [Concomitant]
     Active Substance: SODIUM CHLORIDE
  10. OSELTAMIVIR [Concomitant]
     Active Substance: OSELTAMIVIR
  11. CHOLECALCIFEROL +CALCIUM CARBONATE [Concomitant]
  12. DIMENHYDRINATE. [Concomitant]
     Active Substance: DIMENHYDRINATE
  13. LEVETIRACETAM. [Concomitant]
     Active Substance: LEVETIRACETAM
  14. SODIUM PHOSPHATE [Concomitant]
     Active Substance: SODIUM PHOSPHATE
  15. VINCRISTINE SULFATE. [Concomitant]
     Active Substance: VINCRISTINE SULFATE
  16. ETOPOSIDE. [Concomitant]
     Active Substance: ETOPOSIDE
  17. ONDANSETRON [Concomitant]
     Active Substance: ONDANSETRON
  18. TRIMETHOPRIM-SULFAMETHOXAZOLE [Concomitant]
     Active Substance: SULFAMETHOXAZOLE\TRIMETHOPRIM

REACTIONS (1)
  - Hypoacusis [Unknown]
